FAERS Safety Report 14470143 (Version 3)
Quarter: 2018Q1

REPORT INFORMATION
  Report Type: Spontaneous
  Country: ES (occurrence: ES)
  Receive Date: 20180131
  Receipt Date: 20180208
  Transmission Date: 20180509
  Serious: Yes (Life-Threatening, Hospitalization, Other)
  Sender: FDA-Public Use
  Company Number: ES-PFIZER INC-2018042293

PATIENT
  Age: 69 Year
  Sex: Female

DRUGS (4)
  1. OLARATUMAB [Suspect]
     Active Substance: OLARATUMAB
     Indication: FIBROSARCOMA
     Dosage: 10 MG/KG, UNKNOWN
     Route: 065
     Dates: end: 20171221
  2. OLARATUMAB [Suspect]
     Active Substance: OLARATUMAB
     Indication: LEIOMYOSARCOMA METASTATIC
     Dosage: 1 DF, CYCLIC
     Route: 042
     Dates: start: 20170816
  3. DOXORUBICIN HCL [Suspect]
     Active Substance: DOXORUBICIN HYDROCHLORIDE
     Indication: FIBROSARCOMA
     Dosage: 1 DF, UNK
     Route: 065
     Dates: start: 20170810, end: 20171221
  4. OLARATUMAB [Suspect]
     Active Substance: OLARATUMAB
     Dosage: 12 MG/KG, CYCLIC
     Route: 065
     Dates: end: 201712

REACTIONS (3)
  - Neutropenia [Recovered/Resolved]
  - Febrile neutropenia [Unknown]
  - Malignant neoplasm progression [Unknown]

NARRATIVE: CASE EVENT DATE: 201712
